FAERS Safety Report 10208105 (Version 1)
Quarter: 2014Q2

REPORT INFORMATION
  Report Type: Spontaneous
  Country: FR (occurrence: None)
  Receive Date: 20140527
  Receipt Date: 20140527
  Transmission Date: 20141212
  Serious: Yes (Hospitalization, Other)
  Sender: FDA-Public Use
  Company Number: CLINIGEN-003330

PATIENT
  Age: 84 Year
  Sex: Female

DRUGS (7)
  1. FOSCAVIR (FOSCAVIR) [Suspect]
     Indication: HERPES ZOSTER
     Dosage: (THREE INJECTIONS, EVERY 8 HOURS)
     Dates: start: 20140428, end: 20140429
  2. PRADAXA [Concomitant]
  3. VITAMINS A /00056001/ [Concomitant]
  4. TOBRABACT [Concomitant]
  5. FLUIMUCIL [Concomitant]
  6. LASILIX /00032601/ [Concomitant]
  7. POLARAMINE (TO UNKNOWN) [Concomitant]

REACTIONS (3)
  - Renal failure acute [None]
  - Meningitis [None]
  - Encephalitis [None]
